FAERS Safety Report 13341959 (Version 1)
Quarter: 2017Q1

REPORT INFORMATION
  Report Type: Spontaneous
  Country: FR (occurrence: FR)
  Receive Date: 20170316
  Receipt Date: 20170316
  Transmission Date: 20170428
  Serious: Yes (Hospitalization)
  Sender: FDA-Public Use
  Company Number: FR-LEO PHARMA-300258

PATIENT
  Age: 59 Year
  Sex: Female

DRUGS (2)
  1. PICATO [Suspect]
     Active Substance: INGENOL MEBUTATE
     Indication: ACTINIC KERATOSIS
     Route: 061
     Dates: start: 20170228, end: 20170301
  2. PICATO [Suspect]
     Active Substance: INGENOL MEBUTATE
     Indication: ACTINIC KERATOSIS
     Route: 061
     Dates: start: 20170228, end: 20170301

REACTIONS (7)
  - Hypersensitivity [Unknown]
  - Exfoliative rash [Not Recovered/Not Resolved]
  - Application site erythema [Recovered/Resolved]
  - Eyelid oedema [Not Recovered/Not Resolved]
  - Incorrect drug administration duration [Unknown]
  - Burns second degree [Not Recovered/Not Resolved]
  - Application site pustules [Unknown]

NARRATIVE: CASE EVENT DATE: 20170301
